FAERS Safety Report 11618120 (Version 34)
Quarter: 2020Q4

REPORT INFORMATION
  Report Type: Report from Study
  Country: CA (occurrence: CA)
  Receive Date: 20151010
  Receipt Date: 20201229
  Transmission Date: 20210113
  Serious: Yes (Hospitalization, Other)
  Sender: FDA-Public Use
  Company Number: PHHY2012CA016363

PATIENT
  Age: 55 Year
  Sex: Female

DRUGS (13)
  1. SANDOSTATIN LAR DEPOT [Suspect]
     Active Substance: OCTREOTIDE ACETATE
     Dosage: 30 MG, Q2W (Q14)
     Route: 030
     Dates: start: 201809
  2. COVERSYL [Concomitant]
     Active Substance: PERINDOPRIL
     Indication: BLOOD PRESSURE MEASUREMENT
     Dosage: 8 MG, QD (ONCE A DAY AM)
     Route: 048
  3. PANTOPRAZOLE [Concomitant]
     Active Substance: PANTOPRAZOLE
     Indication: PRODUCT USED FOR UNKNOWN INDICATION
     Dosage: 40 MG, QD (ONCE A DAY AM)
     Route: 048
  4. SANDOSTATIN LAR DEPOT [Suspect]
     Active Substance: OCTREOTIDE ACETATE
     Indication: NEUROENDOCRINE TUMOUR
     Dosage: 30 MG, QMO (EVERY 4 WEEKS)
     Route: 030
     Dates: start: 20090201
  5. SANDOSTATIN LAR DEPOT [Suspect]
     Active Substance: OCTREOTIDE ACETATE
     Dosage: 30 MG, QMO (EVERY 4 WEEKS) (SYRINGE)
     Route: 030
     Dates: start: 20090201
  6. SANDOSTATIN LAR DEPOT [Suspect]
     Active Substance: OCTREOTIDE ACETATE
     Dosage: 30 MG, Q3W (EVERY 3 WEEKS) (VIAL)
     Route: 030
     Dates: start: 20090201
  7. SANDOSTATIN LAR DEPOT [Suspect]
     Active Substance: OCTREOTIDE ACETATE
     Dosage: 30 MG, Q2W (EVERY 2 WEEKS)
     Route: 030
     Dates: start: 20181009
  8. SANDOSTATIN LAR DEPOT [Suspect]
     Active Substance: OCTREOTIDE ACETATE
     Dosage: 30 MG, Q2W (EVERY 2 WEEKS)
     Route: 030
  9. TARO-WARFARIN [Concomitant]
     Active Substance: WARFARIN
     Indication: PRODUCT USED FOR UNKNOWN INDICATION
     Dosage: 5 MG (AS PER INR)
     Route: 048
  10. RAN-AMLODIPINE [Concomitant]
     Indication: BLOOD PRESSURE MEASUREMENT
     Dosage: 2.5 MG, QD (ONCE A DAY AM)
     Route: 048
  11. VITAMIN [Concomitant]
     Active Substance: VITAMINS
     Indication: PRODUCT USED FOR UNKNOWN INDICATION
     Dosage: UNK
     Route: 065
  12. PMS-HYDROCHLOROTHIAZID [Concomitant]
     Indication: BLOOD PRESSURE MEASUREMENT
     Dosage: 12.5 MG, QD (ONCE A DAY AM)
     Route: 048
  13. MCAL [Concomitant]
     Indication: PRODUCT USED FOR UNKNOWN INDICATION
     Dosage: UNK UNK, BID (STRENGTH: 500 MG+400 IU)
     Route: 048

REACTIONS (32)
  - Abnormal faeces [Unknown]
  - Blood pressure increased [Unknown]
  - Cough [Unknown]
  - Hepatic lesion [Unknown]
  - Abdominal distension [Unknown]
  - Neoplasm [Recovered/Resolved]
  - Swelling [Unknown]
  - Oropharyngeal pain [Unknown]
  - Fatigue [Unknown]
  - Post procedural haematoma [Unknown]
  - Malaise [Unknown]
  - Dysphonia [Unknown]
  - Inappropriate schedule of product administration [Unknown]
  - Dyspepsia [Unknown]
  - Diverticulitis [Unknown]
  - Abnormal behaviour [Unknown]
  - Limb injury [Unknown]
  - Blood pressure diastolic increased [Unknown]
  - Heart rate increased [Unknown]
  - Injection site pain [Recovered/Resolved]
  - 5-hydroxyindolacetic acid increased [Unknown]
  - Nail discolouration [Unknown]
  - Body temperature decreased [Unknown]
  - Injection site haemorrhage [Unknown]
  - Procedural pain [Unknown]
  - Cholelithiasis [Unknown]
  - Nasopharyngitis [Unknown]
  - Gastrooesophageal reflux disease [Unknown]
  - Abdominal pain [Recovered/Resolved]
  - Needle issue [Unknown]
  - Diarrhoea [Recovering/Resolving]
  - Abdominal pain lower [Unknown]

NARRATIVE: CASE EVENT DATE: 20150416
